FAERS Safety Report 20327943 (Version 2)
Quarter: 2022Q1

REPORT INFORMATION
  Report Type: Report from Study
  Country: US (occurrence: US)
  Receive Date: 20220112
  Receipt Date: 20220201
  Transmission Date: 20220423
  Serious: Yes (Hospitalization, Other)
  Sender: FDA-Public Use
  Company Number: US-BRISTOL-MYERS SQUIBB COMPANY-BMS-2022-002610

PATIENT
  Sex: Female

DRUGS (2)
  1. APIXABAN [Suspect]
     Active Substance: APIXABAN
     Indication: Deep vein thrombosis
     Dosage: UNK, BID
     Route: 048
  2. APIXABAN [Suspect]
     Active Substance: APIXABAN
     Indication: Thrombosis prophylaxis

REACTIONS (4)
  - International normalised ratio increased [Unknown]
  - Pneumonia [Unknown]
  - COVID-19 [Unknown]
  - Contusion [Unknown]

NARRATIVE: CASE EVENT DATE: 20211230
